FAERS Safety Report 22530148 (Version 2)
Quarter: 2023Q2

REPORT INFORMATION
  Report Type: Report from Study
  Country: CO (occurrence: CO)
  Receive Date: 20230607
  Receipt Date: 20230628
  Transmission Date: 20230722
  Serious: Yes (Hospitalization, Other)
  Sender: FDA-Public Use
  Company Number: CO-TAKEDA-2023TUS055671

PATIENT
  Sex: Male

DRUGS (4)
  1. ADVATE [Suspect]
     Active Substance: ANTIHEMOPHILIC FACTOR, HUMAN RECOMBINANT
     Indication: Factor VIII deficiency
     Dosage: 1500 INTERNATIONAL UNIT
     Route: 042
     Dates: start: 20230426
  2. ADVATE [Suspect]
     Active Substance: ANTIHEMOPHILIC FACTOR, HUMAN RECOMBINANT
     Indication: Factor VIII deficiency
     Dosage: 1500 INTERNATIONAL UNIT
     Route: 042
     Dates: start: 20230426
  3. ADVATE [Suspect]
     Active Substance: ANTIHEMOPHILIC FACTOR, HUMAN RECOMBINANT
     Indication: Factor VIII deficiency
     Dosage: 1500 INTERNATIONAL UNIT
     Route: 042
     Dates: start: 20230426
  4. BISOPROLOL [Concomitant]
     Active Substance: BISOPROLOL
     Indication: Surgery
     Dosage: UNK
     Route: 065

REACTIONS (3)
  - Aortic valve incompetence [Recovering/Resolving]
  - Pruritus [Recovered/Resolved]
  - Hypersensitivity [Recovered/Resolved]
